FAERS Safety Report 4585736-4 (Version None)
Quarter: 2005Q1

REPORT INFORMATION
  Report Type: 
  Country: None (occurrence: None)
  Receive Date: 20050217
  Receipt Date: 20050207
  Transmission Date: 20050727
  Serious: Yes (Hospitalization)
  Sender: FDA-Public Use
  Company Number: US-GLAXOSMITHKLINE-A0544469A

PATIENT
  Age: 71 Year
  Sex: Male

DRUGS (7)
  1. ECOTRIN ADULT LOW STRENGTH TABLETS [Suspect]
     Indication: ANALGESIC INTERVENTION SUPPORTIVE THERAPY
     Dosage: 81MG PER DAY
     Route: 048
     Dates: start: 19920101, end: 20050101
  2. MULTI-VITAMIN [Concomitant]
  3. ZOCOR [Concomitant]
  4. ALLERGY MEDICATION [Concomitant]
  5. VITAMIN B6 [Concomitant]
  6. MULTI-VITAMIN [Concomitant]
  7. MAGNESIUM OXIDE [Concomitant]

REACTIONS (6)
  - BLOOD PRESSURE DECREASED [None]
  - CONTUSION [None]
  - CORONARY ARTERY OCCLUSION [None]
  - HEART RATE DECREASED [None]
  - INCREASED TENDENCY TO BRUISE [None]
  - SYNCOPE [None]
